FAERS Safety Report 19437435 (Version 1)
Quarter: 2021Q2

REPORT INFORMATION
  Report Type: Spontaneous
  Country: NL (occurrence: NL)
  Receive Date: 20210619
  Receipt Date: 20210619
  Transmission Date: 20210717
  Serious: Yes (Other)
  Sender: FDA-Public Use
  Company Number: NL-AUROBINDO-AUR-APL-2021-025187

PATIENT
  Age: 85 Year
  Sex: Female
  Weight: 50 kg

DRUGS (1)
  1. DICLOFENACNATRIUM 50 MG GASTRO?RESISTANT TABLET [Suspect]
     Active Substance: DICLOFENAC SODIUM
     Indication: PAIN
     Dosage: UNK, CAPSULE, 5 MG (MILLIGRAM),
     Route: 065
     Dates: start: 2020

REACTIONS (1)
  - Delirium [Recovered/Resolved]

NARRATIVE: CASE EVENT DATE: 20200310
